FAERS Safety Report 25884291 (Version 1)
Quarter: 2025Q4

REPORT INFORMATION
  Report Type: Spontaneous
  Country: US (occurrence: None)
  Receive Date: 20251003
  Receipt Date: 20251003
  Transmission Date: 20260118
  Serious: Yes (Hospitalization, Other)
  Sender: FDA-CTU
  Company Number: None

PATIENT
  Age: 73 Year
  Sex: Female
  Weight: 84.5 kg

DRUGS (23)
  1. OZEMPIC [Suspect]
     Active Substance: SEMAGLUTIDE
     Indication: Type 2 diabetes mellitus
     Dosage: OTHER FREQUENCY : WEEKLY;?
     Route: 058
     Dates: start: 20241130, end: 20250206
  2. OZEMPIC [Suspect]
     Active Substance: SEMAGLUTIDE
     Indication: Type 2 diabetes mellitus
     Dosage: OTHER FREQUENCY : WEEKLY;?
     Route: 058
     Dates: start: 20250207, end: 20250919
  3. acetaminophen 325 mg tablets [Concomitant]
  4. AMLODIPINE [Concomitant]
     Active Substance: AMLODIPINE BESYLATE
  5. aspirin 81 mg chewable tablets [Concomitant]
  6. ATORVASTATIN [Concomitant]
     Active Substance: ATORVASTATIN
  7. CETIRIZINE HYDROCHLORIDE [Concomitant]
     Active Substance: CETIRIZINE HYDROCHLORIDE
  8. estradiol 0.1% vaginal cream [Concomitant]
  9. fluticasone 50mcg/actuation nasal spray [Concomitant]
  10. gaviscon 80-14.2 mg per chewable tablet [Concomitant]
  11. IBUPROFEN [Concomitant]
     Active Substance: IBUPROFEN
  12. LEVOTHYROXINE [Concomitant]
     Active Substance: LEVOTHYROXINE
  13. LISINOPRIL [Concomitant]
     Active Substance: LISINOPRIL
  14. METFORMIN [Concomitant]
     Active Substance: METFORMIN HYDROCHLORIDE
  15. omeprazole 20 mg DR capsules [Concomitant]
  16. sennosides 8.6 mg tablets [Concomitant]
  17. magnesium citrate PO [Concomitant]
  18. metamucil sugar free PO [Concomitant]
  19. VITAMINS [Concomitant]
     Active Substance: VITAMINS
  20. nystatin 100,000 unit/g ointment [Concomitant]
  21. TRIAMCINOLONE ACETONIDE [Concomitant]
     Active Substance: TRIAMCINOLONE ACETONIDE
  22. prevident 5000 booster plus 1.1% [Concomitant]
  23. refresh tears (ophthalmic) [Concomitant]

REACTIONS (32)
  - Blood glucose increased [None]
  - Fatigue [None]
  - Nausea [None]
  - Abdominal distension [None]
  - Constipation [None]
  - Headache [None]
  - Weight decreased [None]
  - Bursitis [None]
  - Hepatic enzyme increased [None]
  - Abdominal pain upper [None]
  - Hepatic steatosis [None]
  - Flatulence [None]
  - Gamma-glutamyltransferase increased [None]
  - Biliary tract disorder [None]
  - Pancreatic disorder [None]
  - Biliary dilatation [None]
  - Pancreatic duct dilatation [None]
  - Ill-defined disorder [None]
  - Pancreatic neoplasm [None]
  - Pulmonary mass [None]
  - Pancreatic mass [None]
  - Hyperglycaemia [None]
  - Adenocarcinoma [None]
  - Dolichocolon [None]
  - Kidney fibrosis [None]
  - Arteriosclerosis [None]
  - Intervertebral disc degeneration [None]
  - Renal cyst [None]
  - Umbilical hernia [None]
  - Bile duct stenosis [None]
  - Pancreatic atrophy [None]
  - Pancreatic calcification [None]

NARRATIVE: CASE EVENT DATE: 20250918
